FAERS Safety Report 12395904 (Version 3)
Quarter: 2017Q1

REPORT INFORMATION
  Report Type: Spontaneous
  Country: US (occurrence: US)
  Receive Date: 20160523
  Receipt Date: 20170303
  Transmission Date: 20170428
  Serious: No
  Sender: FDA-Public Use
  Company Number: US-ASTRAZENECA-2016SE41693

PATIENT
  Sex: Female

DRUGS (2)
  1. SYMBICORT [Suspect]
     Active Substance: BUDESONIDE\FORMOTEROL FUMARATE DIHYDRATE
     Dosage: 160/4.5 MCG TWO PUFFS ONCE DAILY
     Route: 055
     Dates: start: 20160414
  2. SYMBICORT [Suspect]
     Active Substance: BUDESONIDE\FORMOTEROL FUMARATE DIHYDRATE
     Dosage: 160/4.5 MCG TWO PUFFS ONCE DAILY
     Route: 055
     Dates: start: 20160415

REACTIONS (9)
  - Overdose [Unknown]
  - Product use issue [Unknown]
  - Product quality issue [Unknown]
  - Drug dose omission [Unknown]
  - Dysgeusia [Unknown]
  - Cough [Unknown]
  - Asthma [Unknown]
  - Nasopharyngitis [Unknown]
  - Off label use [Unknown]

NARRATIVE: CASE EVENT DATE: 20160414
